FAERS Safety Report 9495656 (Version 1)
Quarter: 2013Q3

REPORT INFORMATION
  Report Type: Spontaneous
  Country: US (occurrence: US)
  Receive Date: 20130903
  Receipt Date: 20130903
  Transmission Date: 20140515
  Serious: Yes (Other)
  Sender: FDA-Public Use
  Company Number: US-JNJFOC-20130814537

PATIENT
  Age: 30 Year
  Sex: Female
  Weight: 102.51 kg

DRUGS (3)
  1. ORTHO EVRA [Suspect]
     Indication: CONTRACEPTION
     Dosage: BEGAN COUPLE OF YEARS AGO
     Route: 062
     Dates: end: 201303
  2. ORTHO EVRA [Suspect]
     Indication: CONTRACEPTION
     Route: 062
  3. ORTHO EVRA [Suspect]
     Indication: CONTRACEPTION
     Route: 062
     Dates: start: 20130804

REACTIONS (5)
  - Pregnancy with contraceptive patch [Recovered/Resolved]
  - Exposure during pregnancy [Recovered/Resolved]
  - Abortion spontaneous [Unknown]
  - Pregnancy test positive [Unknown]
  - Inappropriate schedule of drug administration [Not Recovered/Not Resolved]
